FAERS Safety Report 9478623 (Version 2)
Quarter: 2013Q4

REPORT INFORMATION
  Report Type: Spontaneous
  Country: US (occurrence: US)
  Receive Date: 20130827
  Receipt Date: 20131015
  Transmission Date: 20140711
  Serious: Yes (Hospitalization)
  Sender: FDA-Public Use
  Company Number: US-SHIRE-ALL1-2013-05694

PATIENT
  Age: 34 Year
  Sex: Female
  Weight: 56.69 kg

DRUGS (1)
  1. PENTASA [Suspect]
     Indication: CROHN^S DISEASE
     Dosage: UNK, UNKNOWN
     Route: 048
     Dates: start: 2002, end: 201012

REACTIONS (3)
  - Gastrointestinal infection [Recovered/Resolved]
  - Intestinal stenosis [Recovered/Resolved]
  - Off label use [Recovered/Resolved]
